FAERS Safety Report 24373074 (Version 2)
Quarter: 2024Q4

REPORT INFORMATION
  Report Type: Report from Study
  Country: US (occurrence: US)
  Receive Date: 20240927
  Receipt Date: 20241212
  Transmission Date: 20250114
  Serious: No
  Sender: SUNOVION
  Company Number: US-SUMITOMO PHARMA SWITZERLAND GMBH-2024SPA003093

PATIENT

DRUGS (5)
  1. ORGOVYX [Suspect]
     Active Substance: RELUGOLIX
     Indication: Prostate cancer
     Dosage: 360 MG, QD (LOADING DOSE)
     Route: 048
     Dates: start: 202403, end: 202403
  2. ORGOVYX [Suspect]
     Active Substance: RELUGOLIX
     Dosage: 120 MG, QD
     Route: 048
     Dates: start: 202403
  3. AMBIEN [Concomitant]
     Active Substance: ZOLPIDEM TARTRATE
     Dosage: UNK
     Route: 065
  4. NUBEQA [Concomitant]
     Active Substance: DAROLUTAMIDE
     Dosage: UNK
     Route: 065
  5. TADALAFIL [Concomitant]
     Active Substance: TADALAFIL
     Dosage: UNK
     Route: 065

REACTIONS (4)
  - Pruritus [Unknown]
  - Cough [Unknown]
  - Dyspnoea [Unknown]
  - Abdominal pain [Unknown]
